FAERS Safety Report 6817577-9 (Version None)
Quarter: 2010Q3

REPORT INFORMATION
  Report Type: 
  Country: None (occurrence: None)
  Receive Date: 20100706
  Receipt Date: 20100623
  Transmission Date: 20110219
  Serious: Yes (Other)
  Sender: FDA-Public Use
  Company Number: PHHY2010US41384

PATIENT
  Sex: Female

DRUGS (1)
  1. VIVELLE-DOT [Suspect]
     Dosage: 0.025 MG, UNK
     Route: 062

REACTIONS (2)
  - CHEST DISCOMFORT [None]
  - MULTIPLE SCLEROSIS [None]
